FAERS Safety Report 23245828 (Version 1)
Quarter: 2023Q4

REPORT INFORMATION
  Report Type: Spontaneous
  Country: US (occurrence: US)
  Receive Date: 20231130
  Receipt Date: 20231130
  Transmission Date: 20240109
  Serious: No
  Sender: FDA-Public Use
  Company Number: US-PFIZER INC-PV202300132391

PATIENT
  Age: 70 Year
  Sex: Female

DRUGS (1)
  1. LORBRENA [Suspect]
     Active Substance: LORLATINIB
     Dosage: 100 MG, DAILY (TAKE 4 TABS 25 MG PO DAILY)
     Route: 048

REACTIONS (2)
  - Mental disorder [Unknown]
  - Intentional product misuse [Unknown]
